FAERS Safety Report 5274163-2 (Version None)
Quarter: 2007Q1

REPORT INFORMATION
  Report Type: 
  Country: None (occurrence: None)
  Receive Date: 20070323
  Receipt Date: 20070316
  Transmission Date: 20070707
  Serious: Yes (Hospitalization)
  Sender: FDA-Public Use
  Company Number: TH-SHR-TH-2007-009558

PATIENT
  Age: 69 Year
  Sex: Female

DRUGS (2)
  1. ULTRAVIST 370 [Suspect]
     Indication: ANGIOGRAM
     Dosage: 100 ML, 1 DOSE
     Dates: start: 20070301, end: 20070301
  2. CHLORPHENIRAMINE MALEATE [Concomitant]
     Dates: start: 20070301

REACTIONS (3)
  - FLUSHING [None]
  - GENERALISED OEDEMA [None]
  - RASH [None]
